FAERS Safety Report 6821395-5 (Version None)
Quarter: 2010Q3

REPORT INFORMATION
  Report Type: 
  Country: None (occurrence: None)
  Receive Date: 20100707
  Receipt Date: 20080909
  Transmission Date: 20110219
  Serious: No
  Sender: FDA-Public Use
  Company Number: US-PFIZER INC-2008075399

PATIENT

DRUGS (3)
  1. ZOLOFT [Suspect]
  2. SYNTHROID [Suspect]
  3. PAXIL [Suspect]
     Indication: DEPRESSION

REACTIONS (1)
  - WEIGHT INCREASED [None]
